FAERS Safety Report 4455389-4 (Version None)
Quarter: 2004Q3

REPORT INFORMATION
  Report Type: 
  Country: None (occurrence: None)
  Receive Date: 20040825
  Receipt Date: 20040712
  Transmission Date: 20050211
  Serious: No
  Sender: FDA-Public Use
  Company Number: 207781

PATIENT
  Age: 45 Year
  Sex: Male
  Weight: 100 kg

DRUGS (4)
  1. RAPTIVA [Suspect]
     Indication: PSORIASIS
     Dosage: 100 MG,1/WEEK,SUBCUTANEOUS
     Route: 058
     Dates: start: 20040501
  2. IBUPROFEN [Concomitant]
  3. CLOBETASOL (CLOBETASOL PROPIONATE) [Concomitant]
  4. DOVONEX [Concomitant]

REACTIONS (1)
  - RETCHING [None]
